FAERS Safety Report 9145644 (Version 1)
Quarter: 2013Q1

REPORT INFORMATION
  Report Type: Spontaneous
  Country: US (occurrence: None)
  Receive Date: 20130227
  Receipt Date: 20130227
  Transmission Date: 20140127
  Serious: Yes (Death)
  Sender: FDA-Public Use
  Company Number: SYM-2013-00093

PATIENT
  Age: 45 Year
  Sex: Female

DRUGS (7)
  1. DIAZEPAM (DIAZEPAM) (DIAZEPAM) [Suspect]
     Indication: PRODUCT USED FOR UNKNOWN INDICATION
     Dosage: ORAL
     Route: 048
  2. FENTANYL (FENTANYL) (FENTANYL) [Suspect]
     Indication: PRODUCT USED FOR UNKNOWN INDICATION
     Dosage: ORAL
     Route: 048
  3. AMITRIPTYLINE (AMITRIPTYLINE) (AMITRIPTYLINE) [Suspect]
     Indication: PRODUCT USED FOR UNKNOWN INDICATION
     Dosage: ORAL
     Route: 048
  4. DIPHENHYDRAMINE (DIPHENHYDRAMINE) (DIPHENHYDRAMINE) [Suspect]
     Indication: PRODUCT USED FOR UNKNOWN INDICATION
     Dosage: ORAL
     Route: 048
  5. PROMETHAZINE (PROMETHAZINE) (PROMETHAZINE) [Suspect]
     Indication: PRODUCT USED FOR UNKNOWN INDICATION
     Dosage: ORAL
     Route: 048
  6. UNSPECIFIED INGREDIENT [Suspect]
     Indication: PRODUCT USED FOR UNKNOWN INDICATION
     Dosage: ORAL
     Route: 048
  7. QUETIAPINE (QUETIAPINE) (QUETIAPINE) [Suspect]
     Indication: PRODUCT USED FOR UNKNOWN INDICATION
     Dosage: ORAL
     Route: 048

REACTIONS (2)
  - Poisoning [None]
  - Intentional drug misuse [None]
